FAERS Safety Report 4579079-2 (Version None)
Quarter: 2005Q1

REPORT INFORMATION
  Report Type: 
  Country: None (occurrence: None)
  Receive Date: 20050127
  Receipt Date: 20040907
  Transmission Date: 20050727
  Serious: No
  Sender: FDA-Public Use
  Company Number: USA040977432

PATIENT
  Age: 36 Year
  Sex: Female
  Weight: 64 kg

DRUGS (2)
  1. STRATTERA [Suspect]
     Dosage: 80 MG/L DAY
     Dates: start: 20040901
  2. SYNTHROID [Concomitant]

REACTIONS (3)
  - ANOREXIA [None]
  - FEELING ABNORMAL [None]
  - TREMOR [None]
